FAERS Safety Report 8407323-X (Version None)
Quarter: 2012Q2

REPORT INFORMATION
  Report Type: 
  Country: None (occurrence: None)
  Receive Date: 20120604
  Receipt Date: 20120529
  Transmission Date: 20120825
  Serious: Yes (Hospitalization)
  Sender: FDA-Public Use
  Company Number: AT-PFIZER INC-2012129561

PATIENT
  Age: 35 Year
  Sex: Male
  Weight: 84 kg

DRUGS (9)
  1. LYRICA [Suspect]
     Indication: RESTLESS LEGS SYNDROME
     Dosage: 25 MG, 1X/DAY
     Route: 048
     Dates: end: 20120505
  2. PREDNISOLONE [Concomitant]
     Route: 048
  3. BISOPROLOL FUMARATE [Concomitant]
     Route: 048
  4. SUPRESSIN [Concomitant]
     Route: 048
  5. NORVASC [Concomitant]
     Route: 048
  6. TACROLIMUS [Concomitant]
     Route: 048
  7. CINACALCET HYDROCHLORIDE [Concomitant]
     Route: 048
  8. NEPHROTRANS [Concomitant]
     Route: 048
  9. MYCOPHENOLATE MOFETIL [Suspect]
     Indication: RENAL TRANSPLANT
     Dosage: 500 MG, 2X/DAY
     Route: 048
     Dates: start: 20120220

REACTIONS (2)
  - AGRANULOCYTOSIS [None]
  - LEUKOPENIA [None]
